FAERS Safety Report 9280466 (Version 2)
Quarter: 2013Q2

REPORT INFORMATION
  Report Type: Spontaneous
  Country: FR (occurrence: None)
  Receive Date: 20130213
  Receipt Date: 20130408
  Transmission Date: 20140414
  Serious: Yes (Hospitalization)
  Sender: FDA-Public Use
  Company Number: 220376

PATIENT
  Age: 73 Year
  Sex: Female

DRUGS (4)
  1. INNOHEP (TINZAPARIN SODIUM) [Suspect]
     Indication: DEEP VEIN THROMBOSIS
     Route: 058
     Dates: start: 20121213
  2. IRESSA [Suspect]
     Indication: ADENOCARCINOMA
     Route: 048
     Dates: start: 20121214, end: 20121219
  3. KARDEGIC (ACETYLSALICYLATE LYSINE) [Suspect]
     Indication: DEEP VEIN THROMBOSIS
     Route: 048
     Dates: start: 20121213, end: 20121219
  4. ZESTRIL (LISINOPRIL) [Concomitant]

REACTIONS (3)
  - Haematuria [None]
  - Culture urine positive [None]
  - Escherichia infection [None]
